FAERS Safety Report 19926180 (Version 1)
Quarter: 2021Q4

REPORT INFORMATION
  Report Type: Spontaneous
  Country: US (occurrence: US)
  Receive Date: 20211006
  Receipt Date: 20211006
  Transmission Date: 20220304
  Serious: Yes (Hospitalization)
  Sender: FDA-Public Use
  Company Number: US-RIGEL PHARMACEUTICALS, INC.-2021FOS000642

PATIENT
  Sex: Female

DRUGS (1)
  1. TAVALISSE [Suspect]
     Active Substance: FOSTAMATINIB
     Indication: Immune thrombocytopenia
     Dosage: 100 MG, BID
     Route: 048
     Dates: start: 20210622

REACTIONS (5)
  - Heart rate increased [Unknown]
  - Cardiac disorder [Unknown]
  - Dyspnoea [Unknown]
  - Platelet count increased [Unknown]
  - Full blood count increased [Unknown]

NARRATIVE: CASE EVENT DATE: 20210101
